FAERS Safety Report 6754632-6 (Version None)
Quarter: 2010Q2

REPORT INFORMATION
  Report Type: 
  Country: None (occurrence: None)
  Receive Date: 20100603
  Receipt Date: 20100528
  Transmission Date: 20101027
  Serious: Yes (Death)
  Sender: FDA-Public Use
  Company Number: US-CELGENEUS-163-21880-10060125

PATIENT
  Sex: Female

DRUGS (4)
  1. REVLIMID [Suspect]
     Indication: MYELODYSPLASTIC SYNDROME
     Route: 048
     Dates: start: 20071001, end: 20100526
  2. REVLIMID [Suspect]
     Route: 048
     Dates: start: 20070601
  3. REVLIMID [Suspect]
     Dosage: 5MG-10MG
     Route: 048
     Dates: start: 20070601
  4. REVLIMID [Suspect]
     Dates: start: 20061201

REACTIONS (1)
  - DEATH [None]
